FAERS Safety Report 18667775 (Version 2)
Quarter: 2021Q1

REPORT INFORMATION
  Report Type: Spontaneous
  Country: IN (occurrence: IN)
  Receive Date: 20201228
  Receipt Date: 20210121
  Transmission Date: 20210419
  Serious: No
  Sender: FDA-Public Use
  Company Number: IN-LUPIN PHARMACEUTICALS INC.-2020-10867

PATIENT

DRUGS (1)
  1. CLOBETASOL PROPIONATE. [Suspect]
     Active Substance: CLOBETASOL PROPIONATE
     Indication: PRODUCT USED FOR UNKNOWN INDICATION
     Dosage: UNK (THE FIXED DOSE COMBINATION CREAM CONSISTED OF CLOBETASOL/UNSPECIFIED ANTIFUNGAL/UNSPECIFIED ANT
     Route: 061

REACTIONS (3)
  - Intentional product misuse [Unknown]
  - Skin ulcer [Unknown]
  - Skin striae [Unknown]
